FAERS Safety Report 5877065-3 (Version None)
Quarter: 2008Q3

REPORT INFORMATION
  Report Type: 
  Country: None (occurrence: None)
  Receive Date: 20080910
  Receipt Date: 20080903
  Transmission Date: 20090109
  Serious: Yes (Hospitalization)
  Sender: FDA-Public Use
  Company Number: PHHY2008FR18330

PATIENT
  Sex: Female

DRUGS (1)
  1. TAREG [Suspect]
     Dosage: 40 MG

REACTIONS (20)
  - ABDOMINAL PAIN [None]
  - ARTHRALGIA [None]
  - DIARRHOEA [None]
  - DIZZINESS [None]
  - DYSPNOEA [None]
  - FATIGUE [None]
  - FLUID RETENTION [None]
  - HEADACHE [None]
  - INSOMNIA [None]
  - MEMORY IMPAIRMENT [None]
  - MYALGIA [None]
  - ORTHOSTATIC HYPOTENSION [None]
  - PAIN [None]
  - PHARYNGITIS [None]
  - PRURITUS [None]
  - RASH [None]
  - SINUSITIS [None]
  - UPPER RESPIRATORY TRACT INFECTION [None]
  - VASCULITIS [None]
  - VERTIGO POSITIONAL [None]
